FAERS Safety Report 5988185-7 (Version None)
Quarter: 2008Q4

REPORT INFORMATION
  Report Type: 
  Country: None (occurrence: None)
  Receive Date: 20081204
  Receipt Date: 20081121
  Transmission Date: 20090506
  Serious: Yes (Death)
  Sender: FDA-Public Use
  Company Number: 2008003034

PATIENT
  Age: 50 Year
  Sex: Female

DRUGS (1)
  1. TARCEVA [Suspect]
     Dosage: ORAL, (QD)
     Route: 048

REACTIONS (1)
  - DEATH [None]
